FAERS Safety Report 19230713 (Version 1)
Quarter: 2021Q2

REPORT INFORMATION
  Report Type: Spontaneous
  Country: US (occurrence: US)
  Receive Date: 20210507
  Receipt Date: 20210507
  Transmission Date: 20210717
  Serious: No
  Sender: FDA-Public Use
  Company Number: None

PATIENT
  Age: 75 Year
  Sex: Male
  Weight: 59 kg

DRUGS (2)
  1. MODERNA COVID?19 VACCINE [Suspect]
     Active Substance: CX-024414
     Indication: IMMUNISATION
     Dates: start: 20210225, end: 20210228
  2. DABIGATRAN (DABIGATRAN ETEXILATE 150MG CAP,ORAL) [Suspect]
     Active Substance: DABIGATRAN ETEXILATE
     Route: 048
     Dates: start: 20180712

REACTIONS (2)
  - Haemorrhage [None]
  - Haematoma [None]

NARRATIVE: CASE EVENT DATE: 20210226
